FAERS Safety Report 26084011 (Version 1)
Quarter: 2025Q4

REPORT INFORMATION
  Report Type: Spontaneous
  Country: US (occurrence: US)
  Receive Date: 20251124
  Receipt Date: 20251124
  Transmission Date: 20260118
  Serious: Yes (Hospitalization, Other)
  Sender: NOVO NORDISK
  Company Number: US-NOVOPROD-1568679

PATIENT
  Age: 77 Year
  Sex: Male

DRUGS (3)
  1. LEVEMIR [Suspect]
     Active Substance: INSULIN DETEMIR
     Indication: Type 2 diabetes mellitus
     Dosage: 38 UNITS A DAY
     Route: 058
     Dates: start: 20111224
  2. ELIQUIS [Concomitant]
     Active Substance: APIXABAN
     Indication: Anticoagulant therapy
     Dosage: 5 MG, BID
  3. COUMADIN [Concomitant]
     Active Substance: WARFARIN SODIUM
     Indication: Anticoagulant therapy
     Dosage: UNK

REACTIONS (7)
  - Coronary artery bypass [Recovered/Resolved]
  - Knee operation [Recovered/Resolved]
  - Pleural effusion [Recovered/Resolved]
  - Coronary artery occlusion [Recovered/Resolved]
  - Joint effusion [Recovering/Resolving]
  - Poor peripheral circulation [Recovering/Resolving]
  - Hypoacusis [Unknown]

NARRATIVE: CASE EVENT DATE: 20190301
